FAERS Safety Report 17348026 (Version 1)
Quarter: 2020Q1

REPORT INFORMATION
  Report Type: Spontaneous
  Country: NL (occurrence: NL)
  Receive Date: 20200130
  Receipt Date: 20200130
  Transmission Date: 20200409
  Serious: Yes (Hospitalization, Other)
  Sender: FDA-Public Use
  Company Number: NL-MYLANLABS-2020M1010849

PATIENT
  Age: 6 Decade
  Sex: Female

DRUGS (6)
  1. FENTANYL. [Suspect]
     Active Substance: FENTANYL
     Dosage: TOOK 10 DOSES WITHIN A FEW HOURS AFTER ADMITTED FOR BREATHLESSNESS
     Route: 045
  2. MORPHINE [Concomitant]
     Active Substance: MORPHINE
     Dosage: IMMEDIATE RELEASE SOLUTION AS NEEDED, WITH A MAXIMUM OF 6 DOSES PER DAY
     Route: 048
  3. FENTANYL. [Concomitant]
     Active Substance: FENTANYL
     Indication: PRODUCT USED FOR UNKNOWN INDICATION
     Dosage: UNK
     Route: 065
  4. FENTANYL. [Suspect]
     Active Substance: FENTANYL
     Indication: CHRONIC OBSTRUCTIVE PULMONARY DISEASE
     Dosage: ADMINISTERED 40 DOSES OF NASAL SPRAY EVERY DAY INSTEAD OF 10
     Route: 045
  5. MORPHINE [Concomitant]
     Active Substance: MORPHINE
     Indication: CHRONIC OBSTRUCTIVE PULMONARY DISEASE
     Dosage: IMMEDIATE RELEASE SOLUTION
     Route: 048
  6. MORPHINE [Suspect]
     Active Substance: MORPHINE
     Indication: CHRONIC OBSTRUCTIVE PULMONARY DISEASE
     Dosage: SUSTAINED RELEASE TABLETS
     Route: 065

REACTIONS (9)
  - Hyperhidrosis [Recovered/Resolved]
  - Discomfort [Unknown]
  - Drug dependence [Unknown]
  - Restlessness [Recovered/Resolved]
  - Tremor [Recovered/Resolved]
  - Intentional product misuse [Unknown]
  - Drug withdrawal syndrome [Recovered/Resolved]
  - Anxiety [Recovered/Resolved]
  - Intentional overdose [Unknown]
